FAERS Safety Report 7847738 (Version 2)
Quarter: 2013Q1

REPORT INFORMATION
  Report Type: Spontaneous
  Country: US (occurrence: None)
  Receive Date: 20110210
  Receipt Date: 20130222
  Transmission Date: 20140127
  Serious: Yes (Other)
  Sender: FDA-Public Use
  Company Number: ACO_21627_2011

PATIENT
  Age: 34 Year
  Sex: Female

DRUGS (12)
  1. AMPYRA [Suspect]
     Indication: PRODUCT USED FOR UNKNOWN INDICATION
     Route: 048
     Dates: start: 20100824
  2. REBIF [Suspect]
     Indication: PRODUCT USED FOR UNKNOWN INDICATION
  3. METHYLPREDNISOLONE [Concomitant]
  4. CYMBALTA [Concomitant]
  5. BENADRYL [Concomitant]
  6. COQ10 (UBIDECARENONE) [Concomitant]
  7. VITAMIN E /00110501/ (TOCOPHEROL) [Concomitant]
  8. FISH OIL (FISH OIL) [Concomitant]
  9. LYRICA [Concomitant]
  10. VESICARE [Concomitant]
  11. VICODIN [Concomitant]
  12. VENTOLIN HFA (SALBUTAMOL SULFATE) [Concomitant]

REACTIONS (9)
  - Syncope [None]
  - Tremor [None]
  - Dizziness [None]
  - Urinary tract infection [None]
  - Weight fluctuation [None]
  - Drug intolerance [None]
  - Device related infection [None]
  - Convulsion [None]
  - Dyspnoea [None]
